FAERS Safety Report 25754044 (Version 1)
Quarter: 2025Q3

REPORT INFORMATION
  Report Type: Spontaneous
  Country: EU (occurrence: EU)
  Receive Date: 20250903
  Receipt Date: 20250903
  Transmission Date: 20251020
  Serious: Yes (Hospitalization)
  Sender: ACCORD
  Company Number: None

PATIENT
  Age: 67 Year
  Sex: Male
  Weight: 71 kg

DRUGS (2)
  1. CLOZAPINE [Suspect]
     Active Substance: CLOZAPINE
     Indication: Behaviour disorder
     Dosage: 75MG MORNING EVENING
     Dates: start: 20250401, end: 20250621
  2. TERALITHE [Concomitant]
     Active Substance: LITHIUM CARBONATE
     Indication: Behaviour disorder
     Dosage: STRENGTH: 400 MG, PROLONGED-RELEASE SCORED TABLET 75MG MORNING EVENING
     Dates: start: 20250402

REACTIONS (1)
  - Agranulocytosis [Recovered/Resolved]

NARRATIVE: CASE EVENT DATE: 20250621
